FAERS Safety Report 7957627-X (Version None)
Quarter: 2011Q4

REPORT INFORMATION
  Report Type: 
  Country: None (occurrence: None)
  Receive Date: 20111205
  Receipt Date: 20111122
  Transmission Date: 20120403
  Serious: Yes (Hospitalization, Other)
  Sender: FDA-Public Use
  Company Number: PHEH2011US010036

PATIENT
  Sex: Male

DRUGS (1)
  1. EXJADE [Suspect]

REACTIONS (6)
  - MALAISE [None]
  - INFECTION [None]
  - SEPSIS [None]
  - SEPTIC SHOCK [None]
  - STRONGYLOIDIASIS [None]
  - LEUKAEMIA RECURRENT [None]
